FAERS Safety Report 4883361-9 (Version None)
Quarter: 2006Q1

REPORT INFORMATION
  Report Type: 
  Country: None (occurrence: None)
  Receive Date: 20060118
  Receipt Date: 20040722
  Transmission Date: 20060701
  Serious: Yes (Life-Threatening, Hospitalization)
  Sender: FDA-Public Use
  Company Number: 2004SE04176

PATIENT
  Age: 47 Year
  Sex: Male

DRUGS (2)
  1. KENZEN [Suspect]
     Indication: HYPERTENSION
     Route: 048
     Dates: start: 20020301, end: 20031001
  2. KENZEN [Suspect]
     Route: 048
     Dates: start: 20031001, end: 20040111

REACTIONS (16)
  - AGITATION [None]
  - AMYOTROPHY [None]
  - ASTHENIA [None]
  - CHOLESTASIS [None]
  - CONDITION AGGRAVATED [None]
  - CONFUSIONAL STATE [None]
  - CYTOLYTIC HEPATITIS [None]
  - GASTRIC ULCER HAEMORRHAGE [None]
  - HELICOBACTER INFECTION [None]
  - HEPATITIS [None]
  - HYPERTENSION [None]
  - HYPOKALAEMIA [None]
  - HYPOMANIA [None]
  - HYPOPROTEINAEMIA [None]
  - NORMOCHROMIC NORMOCYTIC ANAEMIA [None]
  - WEIGHT DECREASED [None]
